FAERS Safety Report 8625278 (Version 3)
Quarter: 2012Q4

REPORT INFORMATION
  Report Type: 
  Country: CO (occurrence: CO)
  Receive Date: 20120620
  Receipt Date: 20121011
  Transmission Date: 20130627
  Serious: Yes (Death, Life-Threatening, Hospitalization, Other)
  Sender: FDA-Public Use
  Company Number: CO-ELI_LILLY_AND_COMPANY-CO201206006010

PATIENT
  Age: 78 Year
  Sex: Female

DRUGS (8)
  1. FORTEO [Suspect]
     Indication: OSTEOPOROSIS
     Dosage: UNK, unknown
     Route: 058
     Dates: start: 20120106, end: 20120330
  2. LOSARTAN [Concomitant]
  3. AMLODIPIN                          /00972401/ [Concomitant]
  4. METOPROLOL [Concomitant]
  5. OMEPRAZOLE [Concomitant]
  6. ACETAMINOPHEN W/CODEINE [Concomitant]
  7. CALCIUM + VITAMIN D [Concomitant]
  8. CALCITRIOL [Concomitant]

REACTIONS (4)
  - Cardio-respiratory arrest [Fatal]
  - Respiratory distress [Unknown]
  - Pancreatitis [Unknown]
  - Bacteraemia [Unknown]
